FAERS Safety Report 6632367-8 (Version None)
Quarter: 2010Q1

REPORT INFORMATION
  Report Type: 
  Country: None (occurrence: None)
  Receive Date: 20100312
  Receipt Date: 20100303
  Transmission Date: 20100710
  Serious: Yes (Death)
  Sender: FDA-Public Use
  Company Number: JP-MERCK-1003USA00830

PATIENT
  Age: 75 Year
  Sex: Male

DRUGS (6)
  1. DECADRON [Suspect]
     Indication: ASTHMA
     Route: 048
  2. MAGNESIUM (UNSPECIFIED) [Concomitant]
     Indication: ASTHMA
     Route: 065
  3. STROMECTOL [Concomitant]
     Indication: STRONGYLOIDIASIS
     Route: 048
  4. PIPERACILLIN SODIUM [Concomitant]
     Indication: PNEUMONIA
     Route: 065
  5. GENTAMICIN SULFATE [Concomitant]
     Indication: PNEUMONIA
     Route: 065
  6. EPINEPHRINE [Concomitant]
     Indication: ASTHMA
     Route: 065

REACTIONS (3)
  - DEATH [None]
  - PULMONARY ALVEOLAR HAEMORRHAGE [None]
  - STRONGYLOIDIASIS [None]
